FAERS Safety Report 18514583 (Version 2)
Quarter: 2020Q4

REPORT INFORMATION
  Report Type: Other
  Country: US (occurrence: US)
  Receive Date: 20201118
  Receipt Date: 20201126
  Transmission Date: 20210114
  Serious: Yes (Death, Other)
  Sender: FDA-Public Use
  Company Number: US-INTERCEPT-PM2020002288

PATIENT
  Age: 68 Year
  Sex: Female

DRUGS (5)
  1. OCALIVA [Suspect]
     Active Substance: OBETICHOLIC ACID
     Dosage: 5 MG, QD
     Route: 048
     Dates: start: 20180817
  2. LACTULOSE. [Concomitant]
     Active Substance: LACTULOSE
  3. OCALIVA [Suspect]
     Active Substance: OBETICHOLIC ACID
     Dosage: 5 MG, QD
     Route: 048
     Dates: end: 202007
  4. URSODIOL. [Concomitant]
     Active Substance: URSODIOL
     Dosage: 500 MG, BID
  5. OCALIVA [Suspect]
     Active Substance: OBETICHOLIC ACID
     Indication: PRIMARY BILIARY CHOLANGITIS
     Dosage: 5 MG, QD
     Route: 048
     Dates: start: 2017

REACTIONS (3)
  - Ascites [Not Recovered/Not Resolved]
  - Jaundice [Not Recovered/Not Resolved]
  - Death [Fatal]

NARRATIVE: CASE EVENT DATE: 20200709
